FAERS Safety Report 6314510-3 (Version None)
Quarter: 2009Q3

REPORT INFORMATION
  Report Type: 
  Country: None (occurrence: None)
  Receive Date: 20090817
  Receipt Date: 20090817
  Transmission Date: 20100115
  Serious: No
  Sender: FDA-Public Use
  Company Number: None

PATIENT
  Age: 52 Year
  Sex: Male
  Weight: 99.7913 kg

DRUGS (1)
  1. ZICAM [Suspect]
     Indication: NASAL CONGESTION
     Dosage: NASAL

REACTIONS (1)
  - ANOSMIA [None]
